FAERS Safety Report 23015971 (Version 1)
Quarter: 2023Q4

REPORT INFORMATION
  Report Type: Spontaneous
  Country: US (occurrence: None)
  Receive Date: 20231001
  Receipt Date: 20231001
  Transmission Date: 20240109
  Serious: Yes (Other)
  Sender: FDA-Public Use
  Company Number: None

PATIENT
  Age: 41 Year
  Sex: Female

DRUGS (1)
  1. LATISSE [Suspect]
     Active Substance: BIMATOPROST
     Indication: Madarosis
     Dosage: 1 DROP AT BEDTIME TOPICAL
     Route: 061

REACTIONS (2)
  - Skin discolouration [None]
  - Eye colour change [None]

NARRATIVE: CASE EVENT DATE: 20231001
